FAERS Safety Report 9792146 (Version 1)
Quarter: 2014Q1

REPORT INFORMATION
  Report Type: Spontaneous
  Country: GR (occurrence: GR)
  Receive Date: 20140102
  Receipt Date: 20140102
  Transmission Date: 20141002
  Serious: Yes (Death)
  Sender: FDA-Public Use
  Company Number: GR-CELGENEUS-066-21880-13124013

PATIENT
  Sex: 0

DRUGS (5)
  1. REVLIMID [Suspect]
     Indication: PLASMA CELL MYELOMA
     Route: 048
     Dates: start: 200104, end: 201112
  2. DEXAMETHASONE [Concomitant]
     Indication: PLASMA CELL MYELOMA
     Route: 065
     Dates: start: 200104, end: 201112
  3. MELPHALAN [Concomitant]
     Indication: PLASMA CELL MYELOMA
     Route: 065
     Dates: start: 200104, end: 201112
  4. PREDNISONE [Concomitant]
     Indication: PLASMA CELL MYELOMA
     Route: 065
     Dates: start: 200104, end: 201112
  5. ANTIBIOTICS [Concomitant]
     Indication: ANTIBIOTIC PROPHYLAXIS
     Route: 065

REACTIONS (3)
  - Death [Fatal]
  - Anaemia [Unknown]
  - Plasma cell myeloma [Unknown]
